FAERS Safety Report 6653926-2 (Version None)
Quarter: 2010Q1

REPORT INFORMATION
  Report Type: 
  Country: None (occurrence: None)
  Receive Date: 20100326
  Receipt Date: 20100316
  Transmission Date: 20100710
  Serious: Yes (Hospitalization)
  Sender: FDA-Public Use
  Company Number: GB-JNJFOC-20100304273

PATIENT
  Age: 41 Year
  Sex: Male

DRUGS (21)
  1. DARUNAVIR [Suspect]
     Indication: HIV INFECTION
     Route: 048
     Dates: start: 20071215, end: 20080104
  2. CYCLOPHOSPHAMIDE [Suspect]
     Indication: HIV INFECTION
     Route: 065
     Dates: start: 20071216, end: 20080104
  3. LAMIVUDINE [Suspect]
     Indication: HIV INFECTION
     Route: 065
     Dates: start: 19970207
  4. LAMIVUDINE [Suspect]
     Route: 065
     Dates: start: 19970207
  5. LAMIVUDINE [Suspect]
     Route: 065
     Dates: start: 19970207
  6. LAMIVUDINE [Suspect]
     Route: 065
     Dates: start: 19970207
  7. MARAVIROC [Suspect]
     Indication: HIV INFECTION
     Route: 065
     Dates: start: 20071215, end: 20080108
  8. MARAVIROC [Suspect]
     Route: 065
     Dates: start: 20071215, end: 20080108
  9. MARAVIROC [Suspect]
     Route: 065
     Dates: start: 20071215, end: 20080108
  10. MARAVIROC [Suspect]
     Route: 065
     Dates: start: 20071215, end: 20080108
  11. RALTEGRAVIR [Suspect]
     Indication: HIV INFECTION
     Route: 048
     Dates: start: 20071216
  12. RALTEGRAVIR [Suspect]
     Route: 048
     Dates: start: 20071216
  13. RALTEGRAVIR [Suspect]
     Route: 048
     Dates: start: 20071216
  14. RALTEGRAVIR [Suspect]
     Route: 048
     Dates: start: 20071216
  15. RITONAVIR [Suspect]
     Indication: DRUG USE FOR UNKNOWN INDICATION
     Route: 065
     Dates: start: 19970204, end: 20080104
  16. SEPTRIN [Suspect]
     Indication: DRUG USE FOR UNKNOWN INDICATION
     Route: 065
     Dates: start: 19960101, end: 20080104
  17. ASPIRIN [Concomitant]
     Indication: DRUG USE FOR UNKNOWN INDICATION
     Route: 065
  18. ATORVASTATIN CALCIUM [Concomitant]
     Indication: DRUG USE FOR UNKNOWN INDICATION
     Route: 065
  19. LOVAZA [Concomitant]
     Indication: DRUG USE FOR UNKNOWN INDICATION
     Route: 065
  20. TIPRANAVIR [Concomitant]
     Indication: DRUG USE FOR UNKNOWN INDICATION
     Route: 065
     Dates: start: 20080215
  21. VITAMIN TAB [Concomitant]
     Indication: DRUG USE FOR UNKNOWN INDICATION

REACTIONS (5)
  - ABDOMINAL DISTENSION [None]
  - NAUSEA [None]
  - STEVENS-JOHNSON SYNDROME [None]
  - VIRAL LOAD INCREASED [None]
  - WEIGHT DECREASED [None]
